FAERS Safety Report 4274444-5 (Version None)
Quarter: 2004Q1

REPORT INFORMATION
  Report Type: 
  Country: None (occurrence: None)
  Receive Date: 20040120
  Receipt Date: 20030919
  Transmission Date: 20041129
  Serious: Yes (Hospitalization)
  Sender: FDA-Public Use
  Company Number: US-BRISTOL-MYERS SQUIBB COMPANY-12387726

PATIENT
  Age: 62 Year
  Sex: Female
  Weight: 59 kg

DRUGS (6)
  1. IFEX [Suspect]
     Indication: UTERINE CANCER
     Dosage: 1ST DOSE ON 01AUG03
     Route: 042
     Dates: start: 20030915, end: 20030915
  2. MESNA [Concomitant]
     Indication: UTERINE CANCER
     Dates: start: 20030915, end: 20030915
  3. DOXORUBICIN HCL [Concomitant]
     Indication: UTERINE CANCER
     Dates: start: 20030915, end: 20030915
  4. DILTIAZEM HCL [Concomitant]
  5. LASIX [Concomitant]
  6. PRAVACHOL [Concomitant]

REACTIONS (1)
  - NEUROTOXICITY [None]
